FAERS Safety Report 5816444-7 (Version None)
Quarter: 2008Q3

REPORT INFORMATION
  Report Type: 
  Country: None (occurrence: None)
  Receive Date: 20080721
  Receipt Date: 20080512
  Transmission Date: 20090109
  Serious: No
  Sender: FDA-Public Use
  Company Number: US-BAUSCH-2008BL002142

PATIENT
  Age: 63 Year
  Sex: Female

DRUGS (6)
  1. OPCON-A [Suspect]
     Indication: EYE PRURITUS
     Route: 047
     Dates: start: 20080508, end: 20080510
  2. OPCON-A [Suspect]
     Route: 047
     Dates: start: 20080511, end: 20080511
  3. NASONEX [Concomitant]
     Indication: SEASONAL ALLERGY
     Route: 045
     Dates: start: 20030101
  4. LISINOPRIL [Concomitant]
     Indication: HYPERTENSION
     Route: 048
  5. EVISTA [Concomitant]
     Indication: OSTEOPENIA
     Route: 048
  6. SYNTHROID [Concomitant]
     Indication: HYPOTHYROIDISM
     Route: 048

REACTIONS (2)
  - MYDRIASIS [None]
  - VISION BLURRED [None]
